FAERS Safety Report 7676525-2 (Version None)
Quarter: 2011Q3

REPORT INFORMATION
  Report Type: 
  Country: None (occurrence: None)
  Receive Date: 20110805
  Receipt Date: 20110721
  Transmission Date: 20111222
  Serious: No
  Sender: FDA-Public Use
  Company Number: TIF2011A00110

PATIENT
  Age: 62 Year
  Sex: Male

DRUGS (7)
  1. LANSOPRAZOLE [Suspect]
     Indication: RHEUMATOID ARTHRITIS
     Dosage: 15 MG ORAL
     Route: 048
     Dates: start: 20060220, end: 20110719
  2. COUMADIN [Concomitant]
  3. ORENCIA [Suspect]
     Indication: RHEUMATOID ARTHRITIS
     Dosage: 750 MG INTRAVENOUS
     Route: 042
     Dates: start: 20101012, end: 20110718
  4. TENORMIN [Concomitant]
  5. LYRICA [Concomitant]
  6. ZESTRIL [Concomitant]
  7. DELTACORETNE(PREDNISONE) [Concomitant]

REACTIONS (2)
  - MASTITIS [None]
  - GYNAECOMASTIA [None]
